FAERS Safety Report 25604690 (Version 1)
Quarter: 2025Q3

REPORT INFORMATION
  Report Type: Other
  Country: US (occurrence: US)
  Receive Date: 20250725
  Receipt Date: 20250725
  Transmission Date: 20251020
  Serious: Yes (Death, Hospitalization, Other)
  Sender: WES PHARMA INC
  Company Number: US-WES Pharma Inc-2181191

PATIENT
  Age: 40 Year
  Sex: Male

DRUGS (3)
  1. OXYCODONE HYDROCHLORIDE [Suspect]
     Active Substance: OXYCODONE HYDROCHLORIDE
     Indication: Product used for unknown indication
  2. METHAMPHETAMINE HYDROCHLORIDE [Suspect]
     Active Substance: METHAMPHETAMINE HYDROCHLORIDE
  3. FENTANYL [Suspect]
     Active Substance: FENTANYL

REACTIONS (6)
  - Sepsis [Fatal]
  - Toxicity to various agents [Fatal]
  - Meningitis streptococcal [Fatal]
  - Cerebral venous sinus thrombosis [Fatal]
  - Hypoxic-ischaemic encephalopathy [Fatal]
  - Brain oedema [Fatal]
